FAERS Safety Report 9596405 (Version 8)
Quarter: 2014Q2

REPORT INFORMATION
  Report Type: Report from Study
  Country: JP (occurrence: JP)
  Receive Date: 20131004
  Receipt Date: 20140627
  Transmission Date: 20141212
  Serious: Yes (Death, Life-Threatening, Hospitalization)
  Sender: FDA-Public Use
  Company Number: JP-SA-CLOF-1002770

PATIENT
  Age: 12 Year
  Sex: Male

DRUGS (13)
  1. EVOLTRA [Suspect]
     Indication: ACUTE LYMPHOCYTIC LEUKAEMIA RECURRENT
     Dosage: 56 MG/BODY, QD
     Route: 042
     Dates: start: 20130824, end: 20130828
  2. VEPESID [Concomitant]
     Indication: ACUTE LYMPHOCYTIC LEUKAEMIA RECURRENT
     Dosage: 210MG/BODY/DAY
     Route: 042
     Dates: start: 20130824, end: 20130828
  3. ENDOXAN [Concomitant]
     Indication: ACUTE LYMPHOCYTIC LEUKAEMIA RECURRENT
     Dosage: 560 MG/BODY/DAY
     Route: 042
     Dates: start: 20130824, end: 20130828
  4. DECADRON [Concomitant]
     Dosage: UNK
     Dates: end: 20130824
  5. SOLU-MEDROL [Concomitant]
     Dosage: UNK
     Dates: start: 20130824
  6. ATARAX-P [Concomitant]
     Dosage: UNK
     Dates: start: 20130824
  7. ZOSYN [Concomitant]
     Dosage: UNK
     Dates: end: 20130824
  8. FUNGUARD [Concomitant]
     Dosage: UNK
     Dates: end: 20130824
  9. CARBENIN [Concomitant]
     Dosage: UNK
     Dates: start: 20130824
  10. RIBALL [Concomitant]
     Dosage: UNK
  11. RIBALL [Concomitant]
     Dosage: UNK
  12. DECADRON PHOSPHATE [Concomitant]
     Indication: ACUTE LYMPHOCYTIC LEUKAEMIA
     Dosage: 3 MG/BODY/DAY
     Route: 042
     Dates: start: 20130824, end: 20130830
  13. DECADRON PHOSPHATE [Concomitant]
     Indication: ACUTE LYMPHOCYTIC LEUKAEMIA
     Dosage: 3 MG/BODY/DAY
     Route: 042
     Dates: start: 20130917, end: 20130921

REACTIONS (13)
  - Anaemia [Not Recovered/Not Resolved]
  - Platelet count decreased [Not Recovered/Not Resolved]
  - Tumour lysis syndrome [Recovered/Resolved]
  - C-reactive protein increased [Unknown]
  - Sepsis [Not Recovered/Not Resolved]
  - Aspartate aminotransferase increased [Not Recovered/Not Resolved]
  - Alanine aminotransferase increased [Not Recovered/Not Resolved]
  - Blood bilirubin increased [Not Recovered/Not Resolved]
  - Febrile neutropenia [Not Recovered/Not Resolved]
  - Acute lymphocytic leukaemia [Fatal]
  - Disseminated intravascular coagulation [Not Recovered/Not Resolved]
  - Haemorrhage intracranial [Not Recovered/Not Resolved]
  - Blood creatinine increased [Not Recovered/Not Resolved]
